FAERS Safety Report 20803085 (Version 1)
Quarter: 2022Q2

REPORT INFORMATION
  Report Type: Report from Study
  Country: US (occurrence: US)
  Receive Date: 20220509
  Receipt Date: 20220509
  Transmission Date: 20220721
  Serious: Yes (Other)
  Sender: FDA-Public Use
  Company Number: US-BRISTOL-MYERS SQUIBB COMPANY-2022-028588

PATIENT
  Age: 66 Year
  Sex: Female
  Weight: 104.1 kg

DRUGS (12)
  1. REVLIMID [Suspect]
     Active Substance: LENALIDOMIDE
     Indication: Plasma cell myeloma
     Route: 048
     Dates: start: 20140512
  2. SOLU-MEDROL [Concomitant]
     Active Substance: METHYLPREDNISOLONE SODIUM SUCCINATE
     Indication: Product used for unknown indication
     Route: 065
  3. CALAN SR [Concomitant]
     Active Substance: VERAPAMIL HYDROCHLORIDE
     Indication: Product used for unknown indication
     Route: 065
  4. NEURONTIN [Concomitant]
     Active Substance: GABAPENTIN
  5. ASPIRIN [Concomitant]
     Active Substance: ASPIRIN
  6. BANOPHEN [Concomitant]
     Active Substance: DIPHENHYDRAMINE HYDROCHLORIDE
  7. POTASSIUM [Concomitant]
     Active Substance: POTASSIUM
  8. PROMETHAZINE [Concomitant]
     Active Substance: PROMETHAZINE HYDROCHLORIDE
  9. VITAMIN B12 [Concomitant]
     Active Substance: CYANOCOBALAMIN
  10. GAMUNEX-C [Concomitant]
     Active Substance: HUMAN IMMUNOGLOBULIN G
  11. SODIUM CHLORIDE [Concomitant]
     Active Substance: SODIUM CHLORIDE
  12. ACETAMINOPHEN\HYDROCODONE [Concomitant]
     Active Substance: ACETAMINOPHEN\HYDROCODONE

REACTIONS (2)
  - Stress [Unknown]
  - Headache [Unknown]
